FAERS Safety Report 20354952 (Version 1)
Quarter: 2022Q1

REPORT INFORMATION
  Report Type: Spontaneous
  Country: US (occurrence: None)
  Receive Date: 20220119
  Receipt Date: 20220119
  Transmission Date: 20220423
  Serious: No
  Sender: FDA-Public Use
  Company Number: None

PATIENT
  Age: 52 Year
  Sex: Male

DRUGS (1)
  1. TEMOZOLOMIDE [Suspect]
     Active Substance: TEMOZOLOMIDE
     Dosage: OTHER QUANTITY : 160;?FREQUENCY : DAILY;?
     Route: 048
     Dates: start: 20220114

REACTIONS (3)
  - Generalised oedema [None]
  - Generalised oedema [None]
  - Pharyngeal swelling [None]

NARRATIVE: CASE EVENT DATE: 20220116
